FAERS Safety Report 6434470-4 (Version None)
Quarter: 2009Q4

REPORT INFORMATION
  Report Type: 
  Country: None (occurrence: None)
  Receive Date: 20091110
  Receipt Date: 20091029
  Transmission Date: 20100525
  Serious: Yes (Disabling)
  Sender: FDA-Public Use
  Company Number: DE-PFIZER INC-2009275284

PATIENT
  Age: 71 Year
  Sex: Female

DRUGS (3)
  1. AROMASIN [Suspect]
     Indication: BREAST CANCER FEMALE
     Dosage: 25 MG, 1X/DAY
     Route: 048
     Dates: start: 20081201
  2. MIRTAZAPINE [Concomitant]
     Indication: DEPRESSION
     Dosage: UNK
     Route: 048
  3. CALCIUM [Concomitant]
     Dosage: UNK
     Route: 048

REACTIONS (5)
  - CARPAL TUNNEL SYNDROME [None]
  - HOT FLUSH [None]
  - JOINT STIFFNESS [None]
  - JOINT SWELLING [None]
  - PARAESTHESIA [None]
